FAERS Safety Report 15221034 (Version 1)
Quarter: 2018Q3

REPORT INFORMATION
  Report Type: Report from Study
  Country: DE (occurrence: DE)
  Receive Date: 20180731
  Receipt Date: 20180731
  Transmission Date: 20181010
  Serious: Yes (Hospitalization)
  Sender: FDA-Public Use
  Company Number: DE-GLAXOSMITHKLINE-DE2018131650

PATIENT
  Age: 54 Year
  Sex: Female
  Weight: 54 kg

DRUGS (3)
  1. CORTISONE ACETATE. [Suspect]
     Active Substance: CORTISONE ACETATE
     Indication: PRODUCT USED FOR UNKNOWN INDICATION
     Dosage: 1 DF, UNK
     Route: 065
  2. INFLECTRA [Suspect]
     Active Substance: INFLIXIMAB-DYYB
     Indication: PRODUCT USED FOR UNKNOWN INDICATION
     Dosage: 275 MG, ^ONCE 8 WEEKS^
     Route: 065
  3. CLEMASTINE FUMARATE. [Suspect]
     Active Substance: CLEMASTINE FUMARATE
     Indication: PRODUCT USED FOR UNKNOWN INDICATION
     Dosage: 1 DF, ^ONCE 8 WEEKS^
     Route: 065

REACTIONS (1)
  - Dermatitis allergic [Recovered/Resolved with Sequelae]

NARRATIVE: CASE EVENT DATE: 20170420
